FAERS Safety Report 25191101 (Version 1)
Quarter: 2025Q2

REPORT INFORMATION
  Report Type: Spontaneous
  Country: FI (occurrence: FI)
  Receive Date: 20250411
  Receipt Date: 20250411
  Transmission Date: 20250716
  Serious: Yes (Congenital Anomaly, Other)
  Sender: TAKEDA
  Company Number: None

PATIENT
  Age: 29 Year
  Sex: Female

DRUGS (5)
  1. ENTYVIO [Suspect]
     Active Substance: VEDOLIZUMAB
     Indication: Colitis ulcerative
     Dosage: 108 MILLIGRAM, Q2WEEKS
     Dates: start: 20240516, end: 202501
  2. ENTYVIO [Suspect]
     Active Substance: VEDOLIZUMAB
  3. VAXIGRIPTETRA [Suspect]
     Active Substance: INFLUENZA VIRUS VACCINE QUADRIVALENT TYPE A+B
     Indication: Influenza immunisation
  4. ASACOL [Suspect]
     Active Substance: MESALAMINE
     Indication: Gastrointestinal disorder
     Dosage: 4800 MILLIGRAM, QD
  5. COVID-19 vaccine [Concomitant]

REACTIONS (3)
  - Maternal exposure during pregnancy [Recovering/Resolving]
  - Hypoplastic left heart syndrome [Not Recovered/Not Resolved]
  - Abortion induced [Unknown]

NARRATIVE: CASE EVENT DATE: 20240101
